FAERS Safety Report 5533034-4 (Version None)
Quarter: 2007Q4

REPORT INFORMATION
  Report Type: 
  Country: None (occurrence: None)
  Receive Date: 20071204
  Receipt Date: 20071120
  Transmission Date: 20080405
  Serious: Yes (Hospitalization)
  Sender: FDA-Public Use
  Company Number: JP-ELI_LILLY_AND_COMPANY-JP200708001534

PATIENT
  Sex: Male
  Weight: 64.5 kg

DRUGS (13)
  1. PEMETREXED [Suspect]
     Indication: PLEURAL MESOTHELIOMA MALIGNANT
     Dosage: 840 MG, OTHER
     Route: 042
     Dates: start: 20070605, end: 20071023
  2. CISPLATIN [Suspect]
     Indication: PLEURAL MESOTHELIOMA MALIGNANT
     Dosage: 130 MG, OTHER
     Route: 042
     Dates: start: 20070605, end: 20071023
  3. PANVITAN [Concomitant]
     Dosage: 0.5 MG, DAILY (1/D)
     Route: 048
     Dates: start: 20070528, end: 20070810
  4. PANVITAN [Concomitant]
     Dosage: 1 G, DAILY (1/D)
     Route: 048
     Dates: start: 20070903, end: 20071115
  5. CYANOCOBALAMIN [Concomitant]
     Dosage: 1 MG, DAILY (1/D)
     Route: 030
     Dates: start: 20070528, end: 20070528
  6. CYANOCOBALAMIN [Concomitant]
     Dosage: 2 ML, DAILY (1/D)
     Route: 030
     Dates: start: 20070730, end: 20070730
  7. CYANOCOBALAMIN [Concomitant]
     Dosage: 2 ML, DAILY (1/D)
     Route: 030
     Dates: start: 20070903, end: 20070903
  8. CYANOCOBALAMIN [Concomitant]
     Dosage: 2 ML, DAILY (1/D)
     Route: 030
     Dates: start: 20071105, end: 20071105
  9. PROTECADIN /JPN/ [Concomitant]
     Indication: GASTRITIS
     Dosage: 10 MG, DAILY (1/D)
     Route: 048
  10. SEROTONE [Concomitant]
     Indication: PROPHYLAXIS
     Dosage: 10 MG, DAILY (1/D)
     Route: 048
     Dates: start: 20070605, end: 20070719
  11. RINDERON [Concomitant]
     Indication: PROPHYLAXIS
     Dosage: 1.5 MG, DAILY (1/D)
     Route: 048
     Dates: start: 20070605, end: 20070719
  12. ROHYPNOL [Concomitant]
     Indication: PROPHYLAXIS
     Dosage: 1.5 MG, DAILY (1/D)
     Route: 048
     Dates: start: 20070605, end: 20070719
  13. NAUZELIN [Concomitant]
     Indication: PROPHYLAXIS
     Dosage: 30 MG, DAILY (1/D)
     Route: 048
     Dates: start: 20070605, end: 20070719

REACTIONS (3)
  - BONE MARROW FAILURE [None]
  - HYPERKALAEMIA [None]
  - RENAL IMPAIRMENT [None]
